FAERS Safety Report 5819704-9 (Version None)
Quarter: 2008Q3

REPORT INFORMATION
  Report Type: 
  Country: None (occurrence: None)
  Receive Date: 20080723
  Receipt Date: 20080710
  Transmission Date: 20090109
  Serious: Yes (Hospitalization, Other)
  Sender: FDA-Public Use
  Company Number: US-ELI_LILLY_AND_COMPANY-US200807002822

PATIENT
  Sex: Female

DRUGS (3)
  1. FORTEO [Suspect]
     Dosage: UNK, UNK
  2. PLAVIX [Concomitant]
  3. BONIVA [Concomitant]
     Dates: start: 20080501

REACTIONS (7)
  - AGITATION [None]
  - CARDIAC DISORDER [None]
  - FALL [None]
  - FEAR [None]
  - HAEMATOMA [None]
  - HAEMORRHAGIC DIATHESIS [None]
  - HIP FRACTURE [None]
